FAERS Safety Report 23865678 (Version 1)
Quarter: 2024Q2

REPORT INFORMATION
  Report Type: Spontaneous
  Country: LV (occurrence: LV)
  Receive Date: 20240517
  Receipt Date: 20240517
  Transmission Date: 20240716
  Serious: Yes (Other)
  Sender: FDA-Public Use
  Company Number: LV-VIIV HEALTHCARE LIMITED-LV2024EME060338

PATIENT

DRUGS (1)
  1. TRIUMEQ [Interacting]
     Active Substance: ABACAVIR SULFATE\DOLUTEGRAVIR SODIUM\LAMIVUDINE
     Indication: Product used for unknown indication
     Dosage: UNK

REACTIONS (4)
  - Pulmonary arterial hypertension [Unknown]
  - Anxiety [Unknown]
  - Phobia [Unknown]
  - Drug interaction [Unknown]
